FAERS Safety Report 4749818-6 (Version None)
Quarter: 2005Q3

REPORT INFORMATION
  Report Type: 
  Country: None (occurrence: None)
  Receive Date: 20050822
  Receipt Date: 20050711
  Transmission Date: 20060218
  Serious: Yes (Hospitalization)
  Sender: FDA-Public Use
  Company Number: 200512303FR

PATIENT
  Age: 13 Year
  Sex: Male

DRUGS (3)
  1. CLAFORAN [Suspect]
     Indication: SEPSIS
     Route: 042
     Dates: start: 20050525, end: 20050620
  2. FOSFOCINE [Suspect]
     Indication: SEPSIS
     Route: 042
     Dates: start: 20050525, end: 20050620
  3. OMEPRAZOLE [Suspect]
     Route: 048
     Dates: start: 20050525, end: 20050620

REACTIONS (2)
  - HYPERTHERMIA [None]
  - PANCYTOPENIA [None]
